FAERS Safety Report 23531627 (Version 1)
Quarter: 2024Q1

REPORT INFORMATION
  Report Type: Spontaneous
  Country: HK (occurrence: HK)
  Receive Date: 20240216
  Receipt Date: 20240216
  Transmission Date: 20240409
  Serious: Yes (Other)
  Sender: FDA-Public Use
  Company Number: HK-STRIDES ARCOLAB LIMITED-2024SP001780

PATIENT
  Age: 6 Decade
  Sex: Male

DRUGS (11)
  1. LAMIVUDINE [Suspect]
     Active Substance: LAMIVUDINE
     Indication: Hepatitis B
     Dosage: 100 MILLIGRAM, QID
     Route: 065
     Dates: start: 2005
  2. LAMIVUDINE [Suspect]
     Active Substance: LAMIVUDINE
     Indication: Hepatic cirrhosis
  3. TENOFOVIR DISOPROXIL FUMARATE [Suspect]
     Active Substance: TENOFOVIR DISOPROXIL FUMARATE
     Indication: Hepatitis B
     Dosage: 300 MILLIGRAM, QID
     Route: 065
     Dates: start: 201412, end: 201903
  4. TENOFOVIR DISOPROXIL FUMARATE [Suspect]
     Active Substance: TENOFOVIR DISOPROXIL FUMARATE
     Indication: Hepatic cirrhosis
  5. ADEFOVIR DIPIVOXIL [Suspect]
     Active Substance: ADEFOVIR DIPIVOXIL
     Indication: Hepatitis B
     Dosage: 10 MILLIGRAM, QID
     Route: 065
     Dates: start: 2007, end: 201412
  6. ADEFOVIR DIPIVOXIL [Suspect]
     Active Substance: ADEFOVIR DIPIVOXIL
     Indication: Hepatic cirrhosis
  7. TENOFOVIR ALAFENAMIDE [Suspect]
     Active Substance: TENOFOVIR ALAFENAMIDE
     Indication: Hepatitis B
     Dosage: 25 MILLIGRAM, QID
     Route: 065
     Dates: start: 201903
  8. TENOFOVIR ALAFENAMIDE [Suspect]
     Active Substance: TENOFOVIR ALAFENAMIDE
     Indication: Hepatic cirrhosis
  9. ALFACALCIDOL [Concomitant]
     Active Substance: ALFACALCIDOL
     Indication: Hypophosphataemia
     Dosage: 1 MICROGRAM, BID
     Route: 065
  10. CARBIDOPA\LEVODOPA [Concomitant]
     Active Substance: CARBIDOPA\LEVODOPA
     Indication: Parkinsonism
     Dosage: 1 DOSAGE FORM, 25/100
     Route: 065
  11. RIVASTIGMINE [Concomitant]
     Active Substance: RIVASTIGMINE
     Indication: Parkinsonism
     Dosage: UNK
     Route: 065

REACTIONS (7)
  - Osteonecrosis [Unknown]
  - Femoral neck fracture [Unknown]
  - Dementia [Not Recovered/Not Resolved]
  - Fanconi syndrome [Unknown]
  - Osteomalacia [Unknown]
  - Hypophosphataemia [Unknown]
  - Drug resistance [Unknown]
